FAERS Safety Report 6303914-0 (Version None)
Quarter: 2009Q3

REPORT INFORMATION
  Report Type: 
  Country: None (occurrence: None)
  Receive Date: 20090805
  Receipt Date: 20090724
  Transmission Date: 20100115
  Serious: Yes (Other)
  Sender: FDA-Public Use
  Company Number: WAES 0907USA05300

PATIENT
  Age: 80 Year
  Sex: Female

DRUGS (5)
  1. FOSAMAX [Suspect]
     Indication: OSTEOPOROSIS
     Dosage: 35 MG/WKY PO
     Route: 048
     Dates: start: 20070804
  2. ELSPRI [Concomitant]
  3. GOREI-SAN [Concomitant]
  4. HYPEN [Concomitant]
  5. PLETAL [Concomitant]

REACTIONS (2)
  - CARDIAC FAILURE CONGESTIVE [None]
  - CONDITION AGGRAVATED [None]
